FAERS Safety Report 12183455 (Version 1)
Quarter: 2016Q1

REPORT INFORMATION
  Report Type: Spontaneous
  Country: US (occurrence: US)
  Receive Date: 20160316
  Receipt Date: 20160316
  Transmission Date: 20160526
  Serious: Yes (Life-Threatening, Other)
  Sender: FDA-Public Use
  Company Number: US-MEDTRONIC-1049145

PATIENT
  Age: 56 Year
  Sex: Female

DRUGS (3)
  1. SUFENTANIL CITRATE. [Suspect]
     Active Substance: SUFENTANIL CITRATE
     Route: 037
  2. DILAUDID [Suspect]
     Active Substance: HYDROMORPHONE HYDROCHLORIDE
     Route: 037
  3. COMPOUNDED BACLOFEN INTRATHECAL [Suspect]
     Active Substance: BACLOFEN
     Indication: SPINAL PAIN
     Route: 037

REACTIONS (10)
  - Urinary incontinence [Recovered/Resolved]
  - Dehydration [Recovered/Resolved]
  - Hyperhidrosis [Unknown]
  - Pain [Unknown]
  - Nausea [Recovered/Resolved]
  - Vomiting [Recovered/Resolved]
  - Nerve compression [Unknown]
  - Drug intolerance [Recovered/Resolved]
  - Blood potassium decreased [Recovered/Resolved]
  - No therapeutic response [Unknown]

NARRATIVE: CASE EVENT DATE: 20160214
